FAERS Safety Report 9841449 (Version 1)
Quarter: 2013Q4

REPORT INFORMATION
  Report Type: Spontaneous
  Country: US (occurrence: None)
  Receive Date: 20131212
  Receipt Date: 20131212
  Transmission Date: 20140711
  Serious: Yes (Hospitalization)
  Sender: FDA-Public Use
  Company Number: 20130401CINRY4067

PATIENT
  Age: 42 Year
  Sex: Female

DRUGS (1)
  1. CINRYZE [Suspect]
     Indication: HEREDITARY ANGIOEDEMA
     Dosage: UNIT, 1 IN 1 D), INTRAVENOUS
     Route: 042
     Dates: start: 200910, end: 201303

REACTIONS (2)
  - Hereditary angioedema [None]
  - Inappropriate schedule of drug administration [None]
